FAERS Safety Report 25407980 (Version 2)
Quarter: 2025Q4

REPORT INFORMATION
  Report Type: Report from Study
  Country: US (occurrence: US)
  Receive Date: 20250606
  Receipt Date: 20251117
  Transmission Date: 20260118
  Serious: No
  Sender: MERCK SHARP & DOHME LLC
  Company Number: US-009507513-2290652

PATIENT
  Age: 65 Year
  Sex: Female
  Weight: 53.524 kg

DRUGS (32)
  1. WINREVAIR [Suspect]
     Active Substance: SOTATERCEPT-CSRK
     Route: 058
  2. WINREVAIR [Suspect]
     Active Substance: SOTATERCEPT-CSRK
  3. WINREVAIR [Suspect]
     Active Substance: SOTATERCEPT-CSRK
  4. WINREVAIR [Suspect]
     Active Substance: SOTATERCEPT-CSRK
  5. WINREVAIR [Suspect]
     Active Substance: SOTATERCEPT-CSRK
     Indication: Pulmonary arterial hypertension
     Dosage: 0.7ML, EVERY 3 WEEKS
     Route: 058
     Dates: start: 20250421
  6. WINREVAIR [Suspect]
     Active Substance: SOTATERCEPT-CSRK
     Dosage: 0.8ML, EVERY 3 WEEKS
     Route: 058
     Dates: start: 20251030
  7. WINREVAIR [Suspect]
     Active Substance: SOTATERCEPT-CSRK
  8. WINREVAIR [Suspect]
     Active Substance: SOTATERCEPT-CSRK
  9. REMODULIN [Suspect]
     Active Substance: TREPROSTINIL
     Dosage: (TREPROSTINIL SODIUM, CONCENTRATION 1 MG/ML) / CURRENT DOSE WAS REPORTED AS 0.026 ?G/KG, CONTINUO...
     Route: 058
     Dates: start: 20250107
  10. MELATONIN [Concomitant]
     Active Substance: MELATONIN
  11. ALDACTONE [Concomitant]
     Active Substance: SPIRONOLACTONE
  12. TRAZODONE [Concomitant]
     Active Substance: TRAZODONE HYDROCHLORIDE
  13. EFFEXOR [Concomitant]
     Active Substance: VENLAFAXINE HYDROCHLORIDE
  14. LASIX [Concomitant]
     Active Substance: FUROSEMIDE
  15. LORAZEPAM [Concomitant]
     Active Substance: LORAZEPAM
  16. OPSUMIT [Concomitant]
     Active Substance: MACITENTAN
  17. AMLODIPINE BESYLATE [Concomitant]
     Active Substance: AMLODIPINE BESYLATE
  18. POTASSIUM CHLORIDE [Concomitant]
     Active Substance: POTASSIUM CHLORIDE
  19. NEXIUM [Concomitant]
     Active Substance: ESOMEPRAZOLE MAGNESIUM
  20. LIPITOR [Concomitant]
     Active Substance: ATORVASTATIN CALCIUM
  21. TADALAFIL [Concomitant]
     Active Substance: TADALAFIL
  22. ACETAMINOPHEN\HYDROCODONE [Concomitant]
     Active Substance: ACETAMINOPHEN\HYDROCODONE
  23. BUDESONIDE [Concomitant]
     Active Substance: BUDESONIDE
  24. OXYGEN [Concomitant]
     Active Substance: OXYGEN
  25. ASPIRIN [Concomitant]
     Active Substance: ASPIRIN
  26. RECLAST [Concomitant]
     Active Substance: ZOLEDRONIC ACID
  27. VITAMIN D3 [Concomitant]
     Active Substance: CHOLECALCIFEROL
  28. IRON [Concomitant]
     Active Substance: IRON
  29. TORSEMIDE [Concomitant]
     Active Substance: TORSEMIDE
  30. LOPERAMIDE [Concomitant]
     Active Substance: LOPERAMIDE
  31. FLONASE ALLERGY RELIEF [Concomitant]
     Active Substance: FLUTICASONE PROPIONATE
  32. ASTEPRO [Concomitant]
     Active Substance: AZELASTINE HYDROCHLORIDE

REACTIONS (6)
  - Nausea [Unknown]
  - Product container issue [Unknown]
  - Syringe issue [Unknown]
  - Product dose omission issue [Unknown]
  - Product physical issue [Unknown]
  - Product solubility abnormal [Unknown]

NARRATIVE: CASE EVENT DATE: 20251030
